FAERS Safety Report 13286476 (Version 2)
Quarter: 2017Q1

REPORT INFORMATION
  Report Type: Report from Study
  Country: None (occurrence: GR)
  Receive Date: 20170302
  Receipt Date: 20170306
  Transmission Date: 20170428
  Serious: Yes (Hospitalization)
  Sender: FDA-Public Use
  Company Number: GR-ABBVIE-17P-066-1892784-00

PATIENT
  Age: 65 Year
  Sex: Male

DRUGS (2)
  1. DUODOPA [Suspect]
     Active Substance: CARBIDOPA\LEVODOPA
     Indication: PARKINSON^S DISEASE
     Dosage: MD: 7.8ML; CD: 2.8ML/H; ED: 1.8ML
     Route: 050
     Dates: start: 20160111, end: 20170223
  2. DUODOPA [Suspect]
     Active Substance: CARBIDOPA\LEVODOPA
     Dosage: MD: 7.5ML; CD: 2.7ML/H; ED: 1.9ML
     Route: 050
     Dates: start: 20170223

REACTIONS (6)
  - Coronary artery disease [Recovering/Resolving]
  - Coronary artery disease [Unknown]
  - Hyperkinesia [Unknown]
  - Chest pain [Unknown]
  - Myocardial infarction [Unknown]
  - Dyspnoea [Unknown]

NARRATIVE: CASE EVENT DATE: 20170222
